FAERS Safety Report 12290908 (Version 1)
Quarter: 2016Q2

REPORT INFORMATION
  Report Type: Spontaneous
  Country: HU (occurrence: HU)
  Receive Date: 20160421
  Receipt Date: 20160421
  Transmission Date: 20160815
  Serious: Yes (Other)
  Sender: FDA-Public Use
  Company Number: HU-TEVA-652788ISR

PATIENT
  Sex: Female
  Weight: 2.18 kg

DRUGS (6)
  1. BLOCALCIN RETARD [Suspect]
     Active Substance: DILTIAZEM HYDROCHLORIDE
     Indication: PULMONARY ARTERIAL HYPERTENSION
     Dosage: 360 MILLIGRAM DAILY; UNTIL GESTATIONAL WEEK 7
     Route: 064
  2. HYPOTHIAZIDE [Suspect]
     Active Substance: HYDROCHLOROTHIAZIDE
     Indication: PULMONARY ARTERIAL HYPERTENSION
     Dosage: 25 MILLIGRAM DAILY; UNTIL GESTATIONAL WEEK 7
     Route: 064
  3. CLEXANE [Suspect]
     Active Substance: ENOXAPARIN SODIUM
     Indication: PROPHYLAXIS
     Dosage: .4 ML DAILY; FROM GESTATIONAL WEEK 7
     Route: 064
  4. MARFARIN [Suspect]
     Active Substance: WARFARIN
     Indication: PULMONARY ARTERIAL HYPERTENSION
     Dosage: 6 MILLIGRAM DAILY; UNTIL GESTATIONAL WEEK 7
     Route: 064
  5. REVATIO [Suspect]
     Active Substance: SILDENAFIL CITRATE
     Indication: PULMONARY ARTERIAL HYPERTENSION
     Dosage: 60 MILLIGRAM DAILY; FROM GESTATIONAL WEEK 7
     Route: 064
  6. NORMODIPINE [Suspect]
     Active Substance: AMLODIPINE BESYLATE
     Indication: PULMONARY ARTERIAL HYPERTENSION
     Dosage: 15 MILLIGRAM DAILY; FROM GESTATIONAL WEEK 7
     Route: 064

REACTIONS (4)
  - Foetal distress syndrome [Unknown]
  - Foetal exposure during pregnancy [Unknown]
  - Infantile apnoea [Unknown]
  - Premature baby [Unknown]
